FAERS Safety Report 21526097 (Version 7)
Quarter: 2023Q1

REPORT INFORMATION
  Report Type: Report from Study
  Country: CA (occurrence: CA)
  Receive Date: 20221031
  Receipt Date: 20230201
  Transmission Date: 20230417
  Serious: Yes (Hospitalization, Other)
  Sender: FDA-Public Use
  Company Number: CA-JNJFOC-20220158769

PATIENT
  Age: 66 Year
  Sex: Female
  Weight: 88 kg

DRUGS (5)
  1. REMICADE [Suspect]
     Active Substance: INFLIXIMAB
     Indication: Sarcoidosis
     Dosage: 2ND WEEK INDUCTION ON 28-JAN-2022. PATIENT RECEIVED INFUSION ON 11-FEB-2022. ?EXPIRY: 31-AUG-2024
     Route: 041
     Dates: start: 20220128
  2. REMICADE [Suspect]
     Active Substance: INFLIXIMAB
     Dosage: EXPIRATION DATE 31-JUL-2025
     Route: 041
     Dates: start: 2022
  3. REMICADE [Suspect]
     Active Substance: INFLIXIMAB
     Route: 041
  4. FUROSEMIDE [Suspect]
     Active Substance: FUROSEMIDE
     Indication: Product used for unknown indication
     Route: 065
  5. ELASOMERAN [Concomitant]
     Active Substance: ELASOMERAN
     Indication: COVID-19 prophylaxis
     Dosage: FULLY VACCINATED
     Route: 065

REACTIONS (34)
  - Cholelithiasis [Unknown]
  - Hypoxia [Unknown]
  - Hallucination [Unknown]
  - Hospitalisation [Unknown]
  - Blood potassium decreased [Unknown]
  - Blood iron decreased [Unknown]
  - Peripheral swelling [Unknown]
  - Dyspnoea [Not Recovered/Not Resolved]
  - Sarcoidosis [Not Recovered/Not Resolved]
  - Pericardial effusion [Unknown]
  - Anaemia [Unknown]
  - Pain in extremity [Unknown]
  - Dizziness [Recovered/Resolved]
  - Infusion related reaction [Unknown]
  - Sinusitis [Recovered/Resolved]
  - Lung disorder [Unknown]
  - Illness [Unknown]
  - Procedural pain [Not Recovered/Not Resolved]
  - Periarthritis [Not Recovered/Not Resolved]
  - Genital erythema [Not Recovered/Not Resolved]
  - Eye pruritus [Not Recovered/Not Resolved]
  - Gallbladder disorder [Unknown]
  - Asthenia [Unknown]
  - Malaise [Recovering/Resolving]
  - Weight increased [Unknown]
  - Eye pain [Unknown]
  - Fibromyalgia [Not Recovered/Not Resolved]
  - Oropharyngeal discomfort [Unknown]
  - Ear discomfort [Unknown]
  - Pain in jaw [Unknown]
  - Blood pressure fluctuation [Recovering/Resolving]
  - Psoriasis [Not Recovered/Not Resolved]
  - COVID-19 [Recovered/Resolved]
  - Ear infection [Not Recovered/Not Resolved]

NARRATIVE: CASE EVENT DATE: 20220101
